FAERS Safety Report 8582541-9 (Version None)
Quarter: 2012Q3

REPORT INFORMATION
  Report Type: 
  Country: None (occurrence: None)
  Receive Date: 20120727
  Receipt Date: 20120713
  Transmission Date: 20120928
  Serious: Yes (Hospitalization)
  Sender: FDA-Public Use
  Company Number: NSR_00590_2012

PATIENT
  Age: 82 Year
  Sex: Female

DRUGS (4)
  1. FAMOTIDINE [Suspect]
     Indication: PRODUCT USED FOR UNKNOWN INDICATION
     Dosage: 20 MG BID
  2. WARFARIN SODIUM [Concomitant]
  3. KEPPRA [Concomitant]
  4. DILANTIN [Concomitant]

REACTIONS (7)
  - MENTAL STATUS CHANGES [None]
  - DELIRIUM [None]
  - CONFUSIONAL STATE [None]
  - MYOCLONUS [None]
  - DISORIENTATION [None]
  - AGITATION [None]
  - DYSARTHRIA [None]
